FAERS Safety Report 8236376-7 (Version None)
Quarter: 2012Q1

REPORT INFORMATION
  Report Type: 
  Country: None (occurrence: None)
  Receive Date: 20120327
  Receipt Date: 20120321
  Transmission Date: 20120608
  Serious: Yes (Life-Threatening, Hospitalization)
  Sender: FDA-Public Use
  Company Number: CA-JNJFOC-20120310918

PATIENT
  Sex: Male
  Weight: 129.4 kg

DRUGS (1)
  1. STELARA [Suspect]
     Indication: PSORIASIS
     Dates: start: 20110501

REACTIONS (1)
  - HEPATIC NEOPLASM MALIGNANT [None]
